FAERS Safety Report 18670160 (Version 1)
Quarter: 2020Q4

REPORT INFORMATION
  Report Type: Spontaneous
  Country: FR (occurrence: FR)
  Receive Date: 20201228
  Receipt Date: 20201228
  Transmission Date: 20210114
  Serious: Yes (Hospitalization)
  Sender: FDA-Public Use
  Company Number: FR-PFIZER INC-2020506896

PATIENT
  Age: 86 Year
  Sex: Female
  Weight: 54 kg

DRUGS (1)
  1. BOSULIF [Suspect]
     Active Substance: BOSUTINIB MONOHYDRATE
     Indication: WALDENSTROM^S MACROGLOBULINAEMIA
     Dosage: 200 MG, 1X/DAY
     Route: 048
     Dates: start: 201904

REACTIONS (2)
  - Cardiac failure [Recovering/Resolving]
  - Off label use [Unknown]

NARRATIVE: CASE EVENT DATE: 201904
